FAERS Safety Report 24103307 (Version 1)
Quarter: 2024Q3

REPORT INFORMATION
  Report Type: Report from Study
  Country: US (occurrence: US)
  Receive Date: 20240717
  Receipt Date: 20240717
  Transmission Date: 20241016
  Serious: Yes (Other)
  Sender: KYOWA
  Company Number: US-KYOWAKIRIN-2023KK015804

PATIENT

DRUGS (9)
  1. MOGAMULIZUMAB [Suspect]
     Active Substance: MOGAMULIZUMAB
     Indication: Cutaneous T-cell lymphoma
     Dosage: UNK (FIRST INFUSION)
     Route: 042
  2. MOGAMULIZUMAB [Suspect]
     Active Substance: MOGAMULIZUMAB
     Dosage: UNK (THIRD INFUSION)
     Route: 042
     Dates: start: 20231004
  3. MOGAMULIZUMAB [Suspect]
     Active Substance: MOGAMULIZUMAB
     Dosage: UNK
     Route: 042
  4. MOGAMULIZUMAB [Suspect]
     Active Substance: MOGAMULIZUMAB
     Dosage: UNK
     Route: 042
  5. MOGAMULIZUMAB [Suspect]
     Active Substance: MOGAMULIZUMAB
     Dosage: UNK
     Route: 042
  6. MOGAMULIZUMAB [Suspect]
     Active Substance: MOGAMULIZUMAB
     Dosage: UNK, 1X/MONTH
     Route: 042
  7. MOGAMULIZUMAB [Suspect]
     Active Substance: MOGAMULIZUMAB
     Dosage: 100 MG, 1X/2 WEEKS
     Route: 042
     Dates: start: 20240116
  8. MOGAMULIZUMAB [Suspect]
     Active Substance: MOGAMULIZUMAB
     Dosage: 100 MG, 1X/2 WEEKS
     Route: 042
     Dates: start: 20240130
  9. MOGAMULIZUMAB [Suspect]
     Active Substance: MOGAMULIZUMAB
     Dosage: 100 MG, 1X/2 WEEKS
     Route: 042
     Dates: start: 20240224

REACTIONS (18)
  - Pruritus [Not Recovered/Not Resolved]
  - Drug eruption [Not Recovered/Not Resolved]
  - Sleep disorder [Unknown]
  - Livedo reticularis [Unknown]
  - T-lymphocyte count decreased [Unknown]
  - Hypersensitivity [Unknown]
  - Lymphadenopathy [Not Recovered/Not Resolved]
  - Tremor [Unknown]
  - Gastrooesophageal reflux disease [Unknown]
  - Tooth disorder [Unknown]
  - Abdominal pain upper [Unknown]
  - Erythema [Unknown]
  - Hyperhidrosis [Unknown]
  - Platelet count decreased [Not Recovered/Not Resolved]
  - Chills [Recovering/Resolving]
  - Stomatitis [Unknown]
  - Rash [Unknown]
  - Off label use [Unknown]

NARRATIVE: CASE EVENT DATE: 20230101
